FAERS Safety Report 20353499 (Version 2)
Quarter: 2022Q1

REPORT INFORMATION
  Report Type: Spontaneous
  Country: CA (occurrence: CA)
  Receive Date: 20220119
  Receipt Date: 20220301
  Transmission Date: 20220423
  Serious: Yes (Other)
  Sender: FDA-Public Use
  Company Number: CA-CELLTRION INC.-2022CA000481

PATIENT

DRUGS (7)
  1. INFLECTRA [Suspect]
     Active Substance: INFLIXIMAB-DYYB
     Dosage: 500 MG , EVERY 6 WEEKS
     Route: 042
     Dates: start: 20191010, end: 20200702
  2. INFLECTRA [Suspect]
     Active Substance: INFLIXIMAB-DYYB
     Dosage: 500 MG , EVERY 6 WEEKS
     Route: 042
     Dates: start: 20200825
  3. INFLECTRA [Suspect]
     Active Substance: INFLIXIMAB-DYYB
     Dosage: 500 MG , EVERY 6 WEEKS
     Route: 042
     Dates: start: 20211129
  4. INFLECTRA [Suspect]
     Active Substance: INFLIXIMAB-DYYB
     Dosage: 500 MG , EVERY 6 WEEKS
     Route: 042
     Dates: start: 20220110
  5. METOPROLOL [Concomitant]
     Active Substance: METOPROLOL
     Dosage: 1 DF
     Route: 065
  6. IRBESARTAN [Concomitant]
     Active Substance: IRBESARTAN
     Dosage: 1 DF
     Route: 065
  7. MERCAPTOPURINE [Concomitant]
     Active Substance: MERCAPTOPURINE
     Dosage: 1 DF
     Route: 065

REACTIONS (3)
  - Crohn^s disease [Unknown]
  - Blood pressure increased [Unknown]
  - Heart rate decreased [Unknown]

NARRATIVE: CASE EVENT DATE: 20220110
